FAERS Safety Report 13168909 (Version 1)
Quarter: 2017Q1

REPORT INFORMATION
  Report Type: Spontaneous
  Country: US (occurrence: US)
  Receive Date: 20170201
  Receipt Date: 20170201
  Transmission Date: 20170428
  Serious: Yes (Hospitalization)
  Sender: FDA-Public Use
  Company Number: US-ABBVIE-17K-163-1851126-00

PATIENT
  Age: 30 Year
  Sex: Female
  Weight: 181.6 kg

DRUGS (1)
  1. HUMIRA [Suspect]
     Active Substance: ADALIMUMAB
     Indication: HIDRADENITIS
     Route: 058

REACTIONS (3)
  - Wound dehiscence [Unknown]
  - Impaired healing [Not Recovered/Not Resolved]
  - Wound sepsis [Unknown]
